FAERS Safety Report 11643279 (Version 3)
Quarter: 2015Q4

REPORT INFORMATION
  Report Type: Report from Study
  Country: FR (occurrence: FR)
  Receive Date: 20151020
  Receipt Date: 20151029
  Transmission Date: 20160304
  Serious: Yes (Hospitalization, Other)
  Sender: FDA-Public Use
  Company Number: PHHY2015FR024228

PATIENT
  Age: 59 Year
  Sex: Female

DRUGS (2)
  1. AFINITOR [Suspect]
     Active Substance: EVEROLIMUS
     Dosage: 10 MG, QD
     Route: 048
     Dates: start: 20150310, end: 201506
  2. AFINITOR [Suspect]
     Active Substance: EVEROLIMUS
     Indication: RENAL CELL CARCINOMA
     Dosage: 10 MG, QD
     Route: 048
     Dates: start: 201411, end: 20150206

REACTIONS (7)
  - Back pain [Recovered/Resolved with Sequelae]
  - Cough [Recovered/Resolved]
  - Anaemia [Not Recovered/Not Resolved]
  - Haemoptysis [Recovered/Resolved]
  - Anaemia [Recovered/Resolved]
  - Lung disorder [Unknown]
  - Back pain [Not Recovered/Not Resolved]

NARRATIVE: CASE EVENT DATE: 201501
